FAERS Safety Report 8757615 (Version 4)
Quarter: 2016Q3

REPORT INFORMATION
  Report Type: Spontaneous
  Country: US (occurrence: US)
  Receive Date: 20120828
  Receipt Date: 20160729
  Transmission Date: 20161109
  Serious: Yes (Hospitalization, Disabling, Other)
  Sender: FDA-Public Use
  Company Number: US-009507513-1208USA007346

PATIENT
  Sex: Female
  Weight: 58.96 kg

DRUGS (6)
  1. FOSAMAX [Suspect]
     Active Substance: ALENDRONATE SODIUM
     Indication: OSTEOPENIA
     Dosage: 70 MG, QW
     Route: 048
  2. FOSAMAX [Suspect]
     Active Substance: ALENDRONATE SODIUM
     Indication: OSTEOPOROSIS
     Dosage: 70 MG, QW
     Route: 048
     Dates: start: 200801, end: 201007
  3. FOSAMAX [Suspect]
     Active Substance: ALENDRONATE SODIUM
     Indication: OSTEOPENIA
  4. LOVASTATIN. [Concomitant]
     Active Substance: LOVASTATIN
     Dosage: 20 MG, UNK
     Route: 065
  5. FOSAMAX [Suspect]
     Active Substance: ALENDRONATE SODIUM
     Indication: OSTEOPOROSIS
     Dosage: 10 MG, QD
     Route: 048
     Dates: start: 20000629
  6. ALENDRONATE SODIUM. [Suspect]
     Active Substance: ALENDRONATE SODIUM
     Dosage: 70 MG, UNK
     Route: 048
     Dates: start: 20100506, end: 20100628

REACTIONS (22)
  - Rib fracture [Unknown]
  - Anaemia postoperative [Recovered/Resolved]
  - Drug ineffective [Unknown]
  - Subcutaneous abscess [Unknown]
  - Muscle strain [Unknown]
  - Chest pain [Unknown]
  - Fall [Unknown]
  - Abdominal pain [Unknown]
  - Anxiety [Not Recovered/Not Resolved]
  - Hiatus hernia [Unknown]
  - Cervical radiculopathy [Unknown]
  - Tooth extraction [Unknown]
  - Arthralgia [Unknown]
  - Femur fracture [Not Recovered/Not Resolved]
  - Vitamin D deficiency [Unknown]
  - Osteoarthritis [Unknown]
  - Neuropathy peripheral [Unknown]
  - Balance disorder [Not Recovered/Not Resolved]
  - Dizziness postural [Unknown]
  - Gastrooesophageal reflux disease [Unknown]
  - Low turnover osteopathy [Not Recovered/Not Resolved]
  - Pyrexia [Recovered/Resolved]

NARRATIVE: CASE EVENT DATE: 20040119
